FAERS Safety Report 21501425 (Version 1)
Quarter: 2022Q4

REPORT INFORMATION
  Report Type: Spontaneous
  Country: US (occurrence: None)
  Receive Date: 20221024
  Receipt Date: 20221024
  Transmission Date: 20230113
  Serious: No
  Sender: FDA-Public Use
  Company Number: None

PATIENT
  Age: 61 Year
  Sex: Female

DRUGS (1)
  1. LENALIDOMIDE [Suspect]
     Active Substance: LENALIDOMIDE
     Indication: Central nervous system lymphoma
     Dosage: 5MG QD ORAL
     Route: 048
     Dates: start: 20210625

REACTIONS (11)
  - Abdominal distension [None]
  - Abdominal discomfort [None]
  - Nausea [None]
  - Constipation [None]
  - Diarrhoea [None]
  - Malaise [None]
  - Weight increased [None]
  - Ageusia [None]
  - Product substitution issue [None]
  - Therapeutic response changed [None]
  - Drug intolerance [None]

NARRATIVE: CASE EVENT DATE: 20221023
